FAERS Safety Report 15205657 (Version 1)
Quarter: 2018Q3

REPORT INFORMATION
  Report Type: Report from Study
  Country: None (occurrence: RO)
  Receive Date: 20180727
  Receipt Date: 20180727
  Transmission Date: 20181010
  Serious: Yes (Hospitalization)
  Sender: FDA-Public Use
  Company Number: RO-ABBVIE-18S-135-2430670-00

PATIENT
  Sex: Female

DRUGS (13)
  1. VIEKIRAX [Suspect]
     Active Substance: OMBITASVIR\PARITAPREVIR\RITONAVIR
     Indication: HEPATIC CIRRHOSIS
  2. SENNALAX [Concomitant]
     Indication: CONSTIPATION
     Route: 048
     Dates: start: 20180503
  3. DOPEGYT [Concomitant]
     Active Substance: METHYLDOPA
     Indication: CARDIAC DISORDER
     Dosage: UNKNOWN
     Route: 048
     Dates: end: 2018
  4. TENAXUM [Concomitant]
     Active Substance: RILMENIDINE
     Dosage: CONTINUED AFTER DOPEGYT
     Route: 048
     Dates: start: 2018
  5. VIEKIRAX [Suspect]
     Active Substance: OMBITASVIR\PARITAPREVIR\RITONAVIR
     Indication: HEPATITIS C
     Route: 048
     Dates: start: 20180503
  6. NORVASC [Concomitant]
     Active Substance: AMLODIPINE BESYLATE
     Indication: CARDIAC DISORDER
     Route: 048
  7. TENAXUM [Concomitant]
     Active Substance: RILMENIDINE
     Indication: CARDIAC DISORDER
     Dosage: THERAPY WAS STOPPED DURING DOPEGYT THERAPY.
     Route: 048
     Dates: end: 2018
  8. EXVIERA [Suspect]
     Active Substance: DASABUVIR
     Indication: HEPATIC CIRRHOSIS
  9. INSULIN [Concomitant]
     Active Substance: INSULIN NOS
     Indication: DIABETES MELLITUS
     Route: 051
  10. FUROSEMID [Concomitant]
     Active Substance: FUROSEMIDE
     Indication: CARDIAC DISORDER
     Route: 048
  11. CONCOR [Concomitant]
     Active Substance: BISOPROLOL FUMARATE
     Indication: CARDIAC DISORDER
     Route: 048
  12. EXVIERA [Suspect]
     Active Substance: DASABUVIR
     Indication: HEPATITIS C
     Route: 048
     Dates: start: 20180503
  13. LIOTON [Concomitant]
     Indication: PAIN IN EXTREMITY
     Dosage: UNKNOWN
     Route: 061
     Dates: start: 201806

REACTIONS (11)
  - Peripheral venous disease [Not Recovered/Not Resolved]
  - Renal disorder [Not Recovered/Not Resolved]
  - Pancreatic enlargement [Not Recovered/Not Resolved]
  - Decreased appetite [Not Recovered/Not Resolved]
  - Pain in extremity [Not Recovered/Not Resolved]
  - Drug dose omission [Recovered/Resolved]
  - Blood bilirubin increased [Not Recovered/Not Resolved]
  - Oedema peripheral [Not Recovered/Not Resolved]
  - Musculoskeletal disorder [Not Recovered/Not Resolved]
  - Rash papular [Not Recovered/Not Resolved]
  - Blood glucose decreased [Not Recovered/Not Resolved]

NARRATIVE: CASE EVENT DATE: 2018
